FAERS Safety Report 9272266 (Version 2)
Quarter: 2013Q2

REPORT INFORMATION
  Report Type: Spontaneous
  Country: DK (occurrence: DK)
  Receive Date: 20130506
  Receipt Date: 20130516
  Transmission Date: 20140414
  Serious: Yes (Hospitalization, Other)
  Sender: FDA-Public Use
  Company Number: DK-BAUSCH-BL-2013-002500

PATIENT
  Age: 50 Year
  Sex: Male

DRUGS (9)
  1. SALBUTAMOL [Suspect]
     Indication: ASTHMA
     Dosage: DOSAGE FORM; OROPHANGEAL
     Route: 049
  2. ATENOLOL [Concomitant]
     Dosage: DOSAGE FORM; ORAL
     Route: 048
  3. RAMIPRIL [Concomitant]
     Dosage: DOSAGE FORM; ORAL
     Route: 048
  4. HYDROCHLOROTHIAZIDE [Concomitant]
     Dosage: DOSAGE FORM; INHALATION
  5. BUDESONIDE [Concomitant]
     Dosage: DOSAGE FORM; INHALATION
  6. FORMOTEROL [Concomitant]
     Dosage: DOSAGE FORM; INHALATION
  7. TERBUTALINE [Concomitant]
     Dosage: DOSAGE FORM; INHALATION
  8. METHYLPREDNISOLONE [Concomitant]
     Dosage: 80 MG; INTRAVENOUS
  9. OXYGEN [Concomitant]
     Dosage: DOSAGE FORM; NASAL
     Route: 045

REACTIONS (2)
  - Lactic acidosis [Recovered/Resolved]
  - Hypokalaemia [Recovered/Resolved]
